FAERS Safety Report 14969379 (Version 1)
Quarter: 2018Q2

REPORT INFORMATION
  Report Type: Spontaneous
  Country: US (occurrence: US)
  Receive Date: 20180511
  Receipt Date: 20180511
  Transmission Date: 20180711
  Serious: Yes (Hospitalization)
  Sender: FDA-Public Use
  Company Number: None

PATIENT
  Age: 11 Year
  Sex: Female

DRUGS (6)
  1. VITAMIN B2 [Concomitant]
     Active Substance: RIBOFLAVIN
  2. SODIUM CHLORIDE. [Concomitant]
     Active Substance: SODIUM CHLORIDE
  3. PULMOZYME [Suspect]
     Active Substance: DORNASE ALFA
     Indication: CYSTIC FIBROSIS
     Dosage: 2.5/2.5 MG/ML BID, ORAL NEBULICED
     Route: 048
     Dates: start: 20141022
  4. TOBI PODHALER [Concomitant]
     Active Substance: TOBRAMYCIN
  5. CAYSTON [Concomitant]
     Active Substance: AZTREONAM
  6. CREON [Concomitant]
     Active Substance: PANCRELIPASE AMYLASE\PANCRELIPASE LIPASE\PANCRELIPASE PROTEASE

REACTIONS (2)
  - Product quality issue [None]
  - Pneumonia staphylococcal [None]

NARRATIVE: CASE EVENT DATE: 20180507
